FAERS Safety Report 13128237 (Version 1)
Quarter: 2017Q1

REPORT INFORMATION
  Report Type: Spontaneous
  Country: NZ (occurrence: NZ)
  Receive Date: 20170118
  Receipt Date: 20170118
  Transmission Date: 20170428
  Serious: Yes (Other)
  Sender: FDA-Public Use
  Company Number: NZ-APOTEX-2017AP005852

PATIENT
  Age: 55 Year
  Sex: Male

DRUGS (2)
  1. APO-ALENDRONATE [Suspect]
     Active Substance: ALENDRONATE SODIUM
     Indication: PRODUCT USED FOR UNKNOWN INDICATION
     Dosage: 70 MG, Q.WK.
     Route: 065
  2. APO-ALENDRONATE [Suspect]
     Active Substance: ALENDRONATE SODIUM
     Dosage: 70 MG, FORTNIGHTLY
     Route: 065

REACTIONS (4)
  - Multiple fractures [Recovered/Resolved]
  - Osteomalacia [Recovered/Resolved]
  - Renal failure [Recovered/Resolved]
  - Hypophosphatasia [Unknown]
